FAERS Safety Report 17601502 (Version 1)
Quarter: 2020Q1

REPORT INFORMATION
  Report Type: Spontaneous
  Country: US (occurrence: US)
  Receive Date: 20200330
  Receipt Date: 20200330
  Transmission Date: 20200409
  Serious: No
  Sender: FDA-Public Use
  Company Number: US-GALDERMA-US19067853

PATIENT
  Age: 21 Year
  Sex: Female

DRUGS (5)
  1. PROACTIV MD ADAPALENE ACNE TREATMENT [Suspect]
     Active Substance: ADAPALENE
     Indication: ACNE
     Dosage: 0.1%
     Route: 061
     Dates: start: 20190604, end: 20191022
  2. PROACTIV MD DEEP CLEANSING FACE WASH [Concomitant]
     Active Substance: COSMETICS
     Indication: ACNE
     Route: 061
     Dates: start: 20190604, end: 20191022
  3. PROACTIV GREEN TEA MOISTURIZER [Concomitant]
     Active Substance: COSMETICS
     Indication: ACNE
     Route: 061
     Dates: start: 20190604, end: 20191022
  4. PROACTIV MD DAILY OIL CONTROL SPF 30 [Suspect]
     Active Substance: AVOBENZONE\OCTISALATE\OCTOCRYLENE
     Indication: ACNE
     Route: 061
     Dates: start: 20190604, end: 20191022
  5. PROACTIV AMAZONIAN CLAY MASK [Concomitant]
     Indication: ACNE
     Route: 061
     Dates: start: 20190604, end: 20191022

REACTIONS (4)
  - Drug ineffective [Unknown]
  - Acne [Recovering/Resolving]
  - Dry skin [Recovering/Resolving]
  - Scar [Recovering/Resolving]

NARRATIVE: CASE EVENT DATE: 20190625
